FAERS Safety Report 4896599-1 (Version None)
Quarter: 2005Q4

REPORT INFORMATION
  Report Type: 
  Country: None (occurrence: None)
  Receive Date: 20051223
  Receipt Date: 20051108
  Transmission Date: 20060501
  Serious: No
  Sender: FDA-Public Use
  Company Number: 424260

PATIENT
  Age: 49 Year
  Sex: Male

DRUGS (2)
  1. COPEGUS [Suspect]
     Indication: HEPATITIS C VIRUS
  2. INTERERON NOS (INTERFERON NOS) [Suspect]
     Indication: HEPATITIS C VIRUS

REACTIONS (1)
  - ANAEMIA [None]
